FAERS Safety Report 4783475-8 (Version None)
Quarter: 2005Q3

REPORT INFORMATION
  Report Type: 
  Country: None (occurrence: None)
  Receive Date: 20050928
  Receipt Date: 20050928
  Transmission Date: 20060218
  Serious: Yes (Hospitalization)
  Sender: FDA-Public Use
  Company Number: None

PATIENT
  Age: 72 Year
  Sex: Male
  Weight: 115.2 kg

DRUGS (5)
  1. HYTRIN [Suspect]
     Dosage: 10MG QDBY MOUTH
     Route: 048
     Dates: start: 20041214, end: 20050312
  2. IPRATROPIUM BROMIDE [Concomitant]
  3. AMOXICILLIN [Concomitant]
  4. SIMVASTATIN [Concomitant]
  5. ATENOLOL [Concomitant]

REACTIONS (1)
  - SYNCOPE [None]
